FAERS Safety Report 7354811-3 (Version None)
Quarter: 2011Q1

REPORT INFORMATION
  Report Type: 
  Country: None (occurrence: None)
  Receive Date: 20110316
  Receipt Date: 20100211
  Transmission Date: 20110831
  Serious: Yes (Other)
  Sender: FDA-Public Use
  Company Number: US-KINGPHARMUSA00001-K201000160

PATIENT
  Sex: Male
  Weight: 79.819 kg

DRUGS (11)
  1. NEXIUM [Concomitant]
     Indication: REFLUX OESOPHAGITIS
     Dosage: UNK
     Dates: start: 20040101
  2. ALTACE [Interacting]
     Dosage: 10 MG, QAM
     Route: 048
     Dates: start: 20100123
  3. MULTIVITAMIN [Concomitant]
     Indication: MACULAR DEGENERATION
     Dosage: UNK
  4. ALTACE [Interacting]
     Indication: HYPERTENSION
     Dosage: 10 MG, QD
     Route: 048
     Dates: start: 20030101, end: 20100101
  5. STATIN UNSPECIFIED [Suspect]
  6. HYDRODIURIL [Interacting]
     Dosage: 12.5 MG, QOD
  7. HYDRODIURIL [Interacting]
     Dosage: 12.5 MG, Q3D
     Dates: end: 20090505
  8. ALTACE [Interacting]
     Dosage: 2.5 MG, QHS
     Route: 048
     Dates: start: 20100124
  9. FLEXERIL [Concomitant]
     Indication: FIBROMYALGIA
     Dosage: 7 MG, QHS
     Dates: start: 20080401
  10. ANTIGLAUCOMA PREPARATIONS AND MIOTICS [Concomitant]
     Indication: GLAUCOMA
     Dosage: UNK
  11. HYDRODIURIL [Interacting]
     Dosage: 12.5 MG, QD
     Dates: start: 20081101

REACTIONS (14)
  - BACK PAIN [None]
  - HYPERTENSION [None]
  - SYNCOPE [None]
  - VOMITING [None]
  - BARRETT'S OESOPHAGUS [None]
  - INSOMNIA [None]
  - HYPONATRAEMIA [None]
  - FIBROMYALGIA [None]
  - MUSCLE SPASMS [None]
  - ARTHRALGIA [None]
  - GASTROENTERITIS VIRAL [None]
  - DIARRHOEA [None]
  - HYPOCHLORAEMIA [None]
  - MYALGIA [None]
